FAERS Safety Report 17516341 (Version 1)
Quarter: 2020Q1

REPORT INFORMATION
  Report Type: Spontaneous
  Country: US (occurrence: US)
  Receive Date: 20200227
  Receipt Date: 20200227
  Transmission Date: 20200409
  Serious: No
  Sender: FDA-Public Use
  Company Number: None

PATIENT
  Sex: Female

DRUGS (2)
  1. PLEGRIDGY PEN [DEVICE] [Suspect]
     Active Substance: DEVICE
  2. PLEGRIDY [Suspect]
     Active Substance: PEGINTERFERON BETA-1A
     Indication: MULTIPLE SCLEROSIS
     Dosage: ?          OTHER STRENGTH:125MCG/.5;OTHER DOSE:125MCG/.5;OTHER FREQUENCY:EVERY 14 DAYS;?
     Route: 058
     Dates: start: 20191002

REACTIONS (4)
  - Diplopia [None]
  - Product dose omission [None]
  - Chest pain [None]
  - Device malfunction [None]
